FAERS Safety Report 24841029 (Version 1)
Quarter: 2025Q1

REPORT INFORMATION
  Report Type: Spontaneous
  Country: CN (occurrence: CN)
  Receive Date: 20250114
  Receipt Date: 20250114
  Transmission Date: 20250409
  Serious: Yes (Other)
  Sender: PFIZER
  Company Number: CN-PFIZER INC-202500005306

PATIENT

DRUGS (1)
  1. LORBRENA [Suspect]
     Active Substance: LORLATINIB

REACTIONS (4)
  - Cardiotoxicity [Unknown]
  - Dyspnoea [Unknown]
  - Chest discomfort [Unknown]
  - Extrasystoles [Unknown]
